FAERS Safety Report 16920112 (Version 1)
Quarter: 2019Q4

REPORT INFORMATION
  Report Type: Spontaneous
  Country: GB (occurrence: GB)
  Receive Date: 20191015
  Receipt Date: 20191015
  Transmission Date: 20200122
  Serious: Yes (Other)
  Sender: FDA-Public Use
  Company Number: GB-MYLANLABS-2019M1096602

PATIENT
  Age: 24 Year
  Sex: Female
  Weight: 75 kg

DRUGS (4)
  1. FEMODENE [Concomitant]
     Active Substance: ETHINYL ESTRADIOL\GESTODENE
     Dosage: 1 DOSAGE FORM, QD (FOR 21 DAYS)
     Dates: start: 20190503
  2. MOMETASONE [Concomitant]
     Active Substance: MOMETASONE
     Dosage: 1 DOSAGE FORM, QD
     Dates: start: 20190523, end: 20190620
  3. NAPROXEN. [Suspect]
     Active Substance: NAPROXEN
     Indication: PRODUCT USED FOR UNKNOWN INDICATION
     Dosage: 500 MILLIGRAM
     Dates: start: 20190515
  4. LOTRIDERM [Concomitant]
     Active Substance: BETAMETHASONE DIPROPIONATE\CLOTRIMAZOLE
     Dosage: 2 DOSAGE FORM, QD
     Dates: start: 20190503, end: 20190517

REACTIONS (2)
  - Swelling face [Recovered/Resolved]
  - Rash [Unknown]
